FAERS Safety Report 5178269-8 (Version None)
Quarter: 2006Q4

REPORT INFORMATION
  Report Type: 
  Country: None (occurrence: None)
  Receive Date: 20061218
  Receipt Date: 20060827
  Transmission Date: 20070319
  Serious: No
  Sender: FDA-Public Use
  Company Number: US-AMGEN-KDL191433

PATIENT
  Sex: Male

DRUGS (3)
  1. ENBREL [Suspect]
     Indication: RHEUMATOID ARTHRITIS
     Route: 058
     Dates: start: 20060817
  2. METHOTREXATE [Concomitant]
     Route: 048
     Dates: start: 20060401
  3. SULFASALAZINE [Concomitant]
     Route: 048
     Dates: start: 20060805

REACTIONS (2)
  - INSOMNIA [None]
  - MUSCLE SPASMS [None]
